FAERS Safety Report 10684993 (Version 1)
Quarter: 2014Q4

REPORT INFORMATION
  Report Type: Spontaneous
  Country: IN (occurrence: None)
  Receive Date: 20141229
  Receipt Date: 20141229
  Transmission Date: 20150529
  Serious: Yes (Other)
  Sender: FDA-Public Use
  Company Number: 2014AJA00037

PATIENT
  Age: 30 Year
  Sex: Male

DRUGS (1)
  1. RISPERIDONE. [Suspect]
     Active Substance: RISPERIDONE
     Indication: SCHIZOPHRENIA

REACTIONS (7)
  - Self esteem inflated [None]
  - Hallucination, auditory [None]
  - Euphoric mood [None]
  - Poverty of thought content [None]
  - Delusional perception [None]
  - Grandiosity [None]
  - Affective disorder [None]

NARRATIVE: CASE EVENT DATE: 20141009
